FAERS Safety Report 7633696-1 (Version None)
Quarter: 2011Q3

REPORT INFORMATION
  Report Type: 
  Country: None (occurrence: None)
  Receive Date: 20110725
  Receipt Date: 20110715
  Transmission Date: 20111222
  Serious: Yes (Life-Threatening, Hospitalization)
  Sender: FDA-Public Use
  Company Number: FR-SANOFI-AVENTIS-2011SA045140

PATIENT
  Age: 65 Year
  Sex: Male

DRUGS (6)
  1. ACETAMINOPHEN [Suspect]
     Indication: BRONCHITIS
     Route: 048
     Dates: start: 20101002, end: 20101007
  2. LEVOTHYROXINE SODIUM [Concomitant]
     Route: 048
     Dates: end: 20101008
  3. AMITRIPTYLINE HCL [Suspect]
     Route: 048
     Dates: end: 20101008
  4. LYRICA [Concomitant]
     Route: 048
  5. KETEK [Suspect]
     Indication: BRONCHITIS
     Route: 048
     Dates: start: 20101003, end: 20101006
  6. METFORMIN HCL [Suspect]
     Indication: TYPE 2 DIABETES MELLITUS
     Route: 048
     Dates: end: 20101008

REACTIONS (2)
  - HEPATITIS FULMINANT [None]
  - ASTHENIA [None]
